FAERS Safety Report 5612537-8 (Version None)
Quarter: 2008Q1

REPORT INFORMATION
  Report Type: 
  Country: None (occurrence: None)
  Receive Date: 20080201
  Receipt Date: 20080201
  Transmission Date: 20080703
  Serious: Yes (Other)
  Sender: FDA-Public Use
  Company Number: None

PATIENT
  Age: 65 Year
  Sex: Male

DRUGS (2)
  1. ATENOLOL [Suspect]
     Indication: ARRHYTHMIA
     Dosage: TAKE 1 TABLET DAILY
     Dates: start: 20070301, end: 20071101
  2. ATENOLOL [Suspect]
     Indication: HYPERTENSION
     Dosage: TAKE 1 TABLET DAILY
     Dates: start: 20070301, end: 20071101

REACTIONS (4)
  - ARRHYTHMIA [None]
  - EYE DISORDER [None]
  - HYPERTENSION [None]
  - PHARMACEUTICAL PRODUCT COMPLAINT [None]
